FAERS Safety Report 6972715-2 (Version None)
Quarter: 2010Q3

REPORT INFORMATION
  Report Type: 
  Country: None (occurrence: None)
  Receive Date: 20100909
  Receipt Date: 20100330
  Transmission Date: 20110219
  Serious: No
  Sender: FDA-Public Use
  Company Number: US-KINGPHARMUSA00001-K201000383

PATIENT
  Sex: Female
  Weight: 58.957 kg

DRUGS (3)
  1. CYTOMEL [Suspect]
     Dosage: 2 TABLETS Q AM + 1 TABLET Q PM
     Dates: start: 20091014
  2. FLEXERIL [Concomitant]
     Dosage: UNK
  3. PROTONIX [Concomitant]
     Dosage: 1 TABLET BID

REACTIONS (2)
  - ASTHENIA [None]
  - DRUG INEFFECTIVE [None]
